FAERS Safety Report 23304241 (Version 1)
Quarter: 2023Q4

REPORT INFORMATION
  Report Type: Spontaneous
  Country: NL (occurrence: NL)
  Receive Date: 20231218
  Receipt Date: 20231218
  Transmission Date: 20240109
  Serious: Yes (Other)
  Sender: FDA-Public Use
  Company Number: NL-STRIDES ARCOLAB LIMITED-2023SP018533

PATIENT

DRUGS (1)
  1. IBUPROFEN [Suspect]
     Active Substance: IBUPROFEN
     Indication: Fungal infection
     Dosage: UNK
     Route: 065

REACTIONS (4)
  - Visual field defect [Unknown]
  - Visual acuity reduced [Unknown]
  - Vision blurred [Unknown]
  - Off label use [Unknown]
